FAERS Safety Report 18758040 (Version 1)
Quarter: 2021Q1

REPORT INFORMATION
  Report Type: Report from Study
  Country: CN (occurrence: CN)
  Receive Date: 20210119
  Receipt Date: 20210119
  Transmission Date: 20210419
  Serious: Yes (Other)
  Sender: FDA-Public Use
  Company Number: CN-ASTRAZENECA-2021A007745

PATIENT
  Age: 52 Year
  Sex: Male

DRUGS (1)
  1. OLAPARIB. [Suspect]
     Active Substance: OLAPARIB
     Indication: GASTRIC CANCER
     Route: 048

REACTIONS (4)
  - Acquired gene mutation [Unknown]
  - Treatment failure [Unknown]
  - Malignant neoplasm progression [Unknown]
  - Drug resistance [Unknown]
